FAERS Safety Report 9758694 (Version 1)
Quarter: 2013Q4

REPORT INFORMATION
  Report Type: Spontaneous
  Country: FR (occurrence: None)
  Receive Date: 20131216
  Receipt Date: 20131216
  Transmission Date: 20140711
  Serious: Yes (Other)
  Sender: FDA-Public Use
  Company Number: 2013-00910(0)

PATIENT
  Age: 15 Year
  Sex: Male

DRUGS (2)
  1. LEVETIRACETAM [Suspect]
     Indication: CONVULSION
     Dosage: 15 MG/KG (7.5 MG/KG, PER DAY),ORAL? ? ?
  2. METHOTREXATE [Suspect]
     Indication: PRODUCT USED FOR UNKNOWN INDICATION
     Dosage: UNKNOWN (UNKNOWN, UNKNOWN -?UNKNOWN (UNKNOWN,UNKNOWN),ORAL

REACTIONS (4)
  - Drug interaction [None]
  - Vomiting [None]
  - Hypertension [None]
  - Renal failure [None]
